FAERS Safety Report 8593500-4 (Version None)
Quarter: 2012Q3

REPORT INFORMATION
  Report Type: 
  Country: None (occurrence: None)
  Receive Date: 20120814
  Receipt Date: 20120806
  Transmission Date: 20120928
  Serious: No
  Sender: FDA-Public Use
  Company Number: US-ASTRAZENECA-2012SE55448

PATIENT
  Age: 63 Year
  Sex: Female
  Weight: 72.6 kg

DRUGS (8)
  1. ALLEGRA [Concomitant]
  2. LIPITOR [Concomitant]
  3. DIOVAN [Concomitant]
  4. CHERRY PILL [Concomitant]
  5. VITAMIN D [Concomitant]
  6. NEXIUM [Suspect]
     Indication: EAGLE BARRETT SYNDROME
     Route: 048
  7. METFORMIN HCL [Concomitant]
  8. SPIRONOLACTONE [Concomitant]

REACTIONS (6)
  - COUGH [None]
  - OFF LABEL USE [None]
  - DIZZINESS [None]
  - INTENTIONAL DRUG MISUSE [None]
  - ANXIETY [None]
  - HYPERTENSION [None]
